FAERS Safety Report 9400107 (Version 2)
Quarter: 2013Q3

REPORT INFORMATION
  Report Type: Spontaneous
  Country: US (occurrence: US)
  Receive Date: 20130715
  Receipt Date: 20130726
  Transmission Date: 20140515
  Serious: Yes (Hospitalization, Other)
  Sender: FDA-Public Use
  Company Number: US-COVIDIEN/TYCO HEALTHCARE/MALLINCKRODT-T201303613

PATIENT
  Age: 40 Year
  Sex: Male

DRUGS (1)
  1. GABLOFEN [Suspect]
     Dosage: UNK
     Route: 037

REACTIONS (15)
  - Overdose [Unknown]
  - Loss of consciousness [Unknown]
  - Hypoxia [Unknown]
  - Orthostatic hypotension [Unknown]
  - Labile blood pressure [Unknown]
  - Hypothermia [Unknown]
  - Hypotension [Unknown]
  - Mental status changes [Unknown]
  - Bradycardia [Unknown]
  - Dyspnoea [Unknown]
  - Somnolence [Unknown]
  - Muscle spasms [Unknown]
  - Burning sensation [Unknown]
  - Urinary tract infection [Unknown]
  - Abdominal rigidity [Unknown]
